FAERS Safety Report 4774754-9 (Version None)
Quarter: 2005Q3

REPORT INFORMATION
  Report Type: 
  Country: None (occurrence: None)
  Receive Date: 20050921
  Receipt Date: 20050914
  Transmission Date: 20060218
  Serious: Yes (Other)
  Sender: FDA-Public Use
  Company Number: 416895

PATIENT
  Sex: Female

DRUGS (2)
  1. CARVEDILOL [Suspect]
     Indication: DRUG USE FOR UNKNOWN INDICATION
     Dosage: 3.125MG PER DAY
     Route: 065
     Dates: start: 20050815
  2. CONCURRENT MEDICATIONS [Concomitant]

REACTIONS (1)
  - CONDITION AGGRAVATED [None]
